FAERS Safety Report 5119858-6 (Version None)
Quarter: 2006Q4

REPORT INFORMATION
  Report Type: 
  Country: None (occurrence: None)
  Receive Date: 20061003
  Receipt Date: 20060928
  Transmission Date: 20070319
  Serious: Yes (Life-Threatening, Hospitalization)
  Sender: FDA-Public Use
  Company Number: US-ROXANE LABORATORIES, INC-2006-DE-05178GD

PATIENT
  Age: 5 Week
  Sex: Male
  Weight: 5 kg

DRUGS (4)
  1. MORPHINE [Suspect]
  2. CODEINE [Suspect]
  3. ACETAMINOPHEN AND CODEINE PHOSPHATE [Suspect]
  4. SIMETHICONE [Concomitant]
     Indication: ABDOMINAL PAIN
     Route: 048

REACTIONS (15)
  - BLOOD PRESSURE INCREASED [None]
  - BRADYCARDIA [None]
  - CHILD ABUSE [None]
  - CYANOSIS [None]
  - DEPRESSED LEVEL OF CONSCIOUSNESS [None]
  - HEART RATE INCREASED [None]
  - INTERCOSTAL RETRACTION [None]
  - MUSCLE RIGIDITY [None]
  - POISONING DELIBERATE [None]
  - PROCEDURAL COMPLICATION [None]
  - RESPIRATORY DISTRESS [None]
  - STATUS EPILEPTICUS [None]
  - STRIDOR [None]
  - TENDERNESS [None]
  - THERAPEUTIC AGENT TOXICITY [None]
